FAERS Safety Report 11417590 (Version 1)
Quarter: 2015Q3

REPORT INFORMATION
  Report Type: Spontaneous
  Country: US (occurrence: US)
  Receive Date: 20150825
  Receipt Date: 20150825
  Transmission Date: 20151125
  Serious: No
  Sender: FDA-Public Use
  Company Number: US-TARO-2014TAR00320

PATIENT
  Sex: Female
  Weight: 88.44 kg

DRUGS (3)
  1. CLOBETASOL PROPIONATE OINTMENT USP 0.05% [Suspect]
     Active Substance: CLOBETASOL PROPIONATE
     Indication: LICHEN PLANUS
     Dosage: UNK, 2X/DAY
     Route: 061
     Dates: start: 2012, end: 2013
  2. CLOBETASOL PROPIONATE OINTMENT USP 0.05% [Suspect]
     Active Substance: CLOBETASOL PROPIONATE
     Dosage: UNK, 2X/DAY
     Route: 002
     Dates: start: 2012
  3. CLOBETASOL PROPIONATE OINTMENT USP 0.05% [Suspect]
     Active Substance: CLOBETASOL PROPIONATE
     Dosage: UNK, 2X/DAY
     Route: 002
     Dates: start: 20140829

REACTIONS (5)
  - Accidental exposure to product [Unknown]
  - Incorrect route of drug administration [Not Recovered/Not Resolved]
  - Incorrect drug administration duration [Unknown]
  - Localised infection [Unknown]
  - Skin atrophy [Unknown]

NARRATIVE: CASE EVENT DATE: 2012
